FAERS Safety Report 7499096-2 (Version None)
Quarter: 2011Q2

REPORT INFORMATION
  Report Type: 
  Country: None (occurrence: None)
  Receive Date: 20110524
  Receipt Date: 20110220
  Transmission Date: 20111010
  Serious: No
  Sender: FDA-Public Use
  Company Number: US-NOVEN-11US001831

PATIENT
  Sex: Male
  Weight: 18.141 kg

DRUGS (3)
  1. DAYTRANA [Suspect]
     Dosage: 1/2 10MG QD
     Route: 062
     Dates: start: 20110218
  2. DAYTRANA [Suspect]
     Indication: ATTENTION DEFICIT/HYPERACTIVITY DISORDER
     Dosage: 10 MG, QD
     Route: 062
     Dates: start: 20110211
  3. DEPAKOTE [Concomitant]
     Indication: CONVULSION
     Dosage: 1000 MG, UNK
     Route: 048

REACTIONS (5)
  - APPLICATION SITE IRRITATION [None]
  - DRUG ADMINISTERED AT INAPPROPRIATE SITE [None]
  - APPLICATION SITE ERYTHEMA [None]
  - DRUG PRESCRIBING ERROR [None]
  - WRONG TECHNIQUE IN DRUG USAGE PROCESS [None]
